FAERS Safety Report 20316050 (Version 1)
Quarter: 2022Q1

REPORT INFORMATION
  Report Type: Report from Study
  Country: FR (occurrence: FR)
  Receive Date: 20220110
  Receipt Date: 20220110
  Transmission Date: 20220424
  Serious: Yes (Life-Threatening, Other)
  Sender: FDA-Public Use
  Company Number: FR-AUROBINDO-AUR-APL-2022-000404

PATIENT
  Age: 57 Year
  Sex: Female

DRUGS (2)
  1. FLECAINIDE [Suspect]
     Active Substance: FLECAINIDE
     Indication: Schizophrenia
     Dosage: UNK
     Route: 065
  2. PALIPERIDONE PALMITATE [Suspect]
     Active Substance: PALIPERIDONE PALMITATE
     Indication: Schizophrenia
     Dosage: LESSTHAN 24 MILLIGRAM
     Route: 030

REACTIONS (2)
  - Cardiac arrest [Recovering/Resolving]
  - Torsade de pointes [Recovering/Resolving]
